FAERS Safety Report 24616662 (Version 1)
Quarter: 2024Q4

REPORT INFORMATION
  Report Type: Spontaneous
  Country: NL (occurrence: NL)
  Receive Date: 20241114
  Receipt Date: 20241114
  Transmission Date: 20250115
  Serious: Yes (Life-Threatening, Hospitalization)
  Sender: CHEPLAPHARM
  Company Number: None

PATIENT
  Age: 45 Year
  Sex: Male
  Weight: 57 kg

DRUGS (4)
  1. CAPECITABINE [Suspect]
     Active Substance: CAPECITABINE
     Indication: Colon cancer
     Dosage: 2 X PER DAY 3 TO 4 PIECES
     Route: 048
     Dates: start: 20240704, end: 20240808
  2. OXALIPLATIN [Suspect]
     Active Substance: OXALIPLATIN
     Indication: Colon cancer
     Dosage: 1 X PER DAY 225 MG EVERY 3 WEEKS
     Dates: start: 20240704, end: 20240725
  3. CEFUROXIME [Concomitant]
     Active Substance: CEFUROXIME
     Dosage: INFUSION FLUID, 15 MG/ML (MILLIGRAM PER MILLILITER)
  4. POTASSIUM CHLORIDE [Concomitant]
     Active Substance: POTASSIUM CHLORIDE
     Dosage: IV, 1 MG/MG (MILLIGRAM PER MILLIGRAM)
     Route: 042

REACTIONS (4)
  - Necrotising oesophagitis [Recovering/Resolving]
  - Electrolyte imbalance [Unknown]
  - Diarrhoea [Unknown]
  - Mucosal inflammation [Unknown]
